FAERS Safety Report 12931418 (Version 1)
Quarter: 2016Q4

REPORT INFORMATION
  Report Type: Spontaneous
  Country: US (occurrence: US)
  Receive Date: 20161111
  Receipt Date: 20161111
  Transmission Date: 20170207
  Serious: Yes (Other)
  Sender: FDA-Public Use
  Company Number: None

PATIENT
  Age: 36 Year
  Sex: Male
  Weight: 122 kg

DRUGS (1)
  1. ARMODAFINIL. [Suspect]
     Active Substance: ARMODAFINIL
     Indication: HYPERSOMNIA
     Route: 048
     Dates: start: 20161101, end: 20161104

REACTIONS (2)
  - Headache [None]
  - Product substitution issue [None]

NARRATIVE: CASE EVENT DATE: 20161104
